FAERS Safety Report 9949641 (Version 1)
Quarter: 2014Q1

REPORT INFORMATION
  Report Type: Report from Study
  Country: US (occurrence: US)
  Receive Date: 20140304
  Receipt Date: 20140304
  Transmission Date: 20141002
  Serious: No
  Sender: FDA-Public Use
  Company Number: US-ABBVIE-13P-163-1068277-00

PATIENT
  Age: 51 Year
  Sex: Male

DRUGS (7)
  1. HUMIRA [Suspect]
     Indication: PSORIASIS
     Dates: start: 20130301, end: 20130301
  2. HUMIRA [Suspect]
     Indication: PSORIATIC ARTHROPATHY
     Dates: start: 20130308
  3. UNKNOWN HYPERTENSION MEDICATION [Concomitant]
     Indication: HYPERTENSION
  4. UNKNOWN ACID REFLUX MEDICATION [Concomitant]
     Indication: GASTROOESOPHAGEAL REFLUX DISEASE
  5. UNKNOWN ANTI-INFLAMMATORY MEDICATION [Concomitant]
     Indication: ANTIINFLAMMATORY THERAPY
  6. NEURONTIN [Concomitant]
     Indication: NEURALGIA
  7. UNKNOWN MUSCLE RELAXER MEDICATION [Concomitant]
     Indication: SURGERY

REACTIONS (1)
  - Injection site pain [Not Recovered/Not Resolved]
